FAERS Safety Report 5286218-7 (Version None)
Quarter: 2007Q2

REPORT INFORMATION
  Report Type: 
  Country: None (occurrence: None)
  Receive Date: 20070404
  Receipt Date: 20070329
  Transmission Date: 20071010
  Serious: Yes (Hospitalization)
  Sender: FDA-Public Use
  Company Number: 2006UW14544

PATIENT
  Age: 89 Year
  Sex: Female
  Weight: 73 kg

DRUGS (13)
  1. NEXIUM [Suspect]
     Indication: DUODENAL ULCER
     Route: 048
     Dates: start: 20060101, end: 20060101
  2. NEXIUM [Suspect]
     Indication: HIATUS HERNIA
     Route: 048
     Dates: start: 20060101, end: 20060101
  3. NEXIUM [Suspect]
     Indication: GASTROOESOPHAGEAL REFLUX DISEASE
     Route: 048
     Dates: start: 20060101, end: 20060101
  4. NEXIUM [Suspect]
     Route: 048
     Dates: start: 20060101
  5. NEXIUM [Suspect]
     Route: 048
     Dates: start: 20060101
  6. NEXIUM [Suspect]
     Route: 048
     Dates: start: 20060101
  7. COZAAR [Concomitant]
  8. HYDROCHLORATHIAZIDE [Concomitant]
  9. LORAZEPAM [Concomitant]
  10. COLACE [Concomitant]
  11. PLAVIX [Concomitant]
     Dates: end: 20060704
  12. TOPROL-XL [Concomitant]
  13. SENNA [Concomitant]

REACTIONS (10)
  - ABDOMINAL DISTENSION [None]
  - ABDOMINAL PAIN UPPER [None]
  - DIARRHOEA [None]
  - DIZZINESS [None]
  - DRUG INEFFECTIVE [None]
  - DRY MOUTH [None]
  - FRACTURE [None]
  - HEADACHE [None]
  - NAUSEA [None]
  - VISION BLURRED [None]
